FAERS Safety Report 6077794-5 (Version None)
Quarter: 2009Q1

REPORT INFORMATION
  Report Type: 
  Country: None (occurrence: None)
  Receive Date: 20090213
  Receipt Date: 20090203
  Transmission Date: 20090719
  Serious: Yes (Hospitalization)
  Sender: FDA-Public Use
  Company Number: BE-PFIZER INC-2008159539

PATIENT

DRUGS (6)
  1. AMLOD [Suspect]
     Indication: HYPERTENSION
     Dosage: 5 MG, 1X/DAY
     Route: 048
     Dates: start: 20071201
  2. AMLOD [Suspect]
     Dosage: 10 MG, 1X/DAY
  3. AMLOD [Suspect]
     Dosage: 5 MG, UNK
     Dates: end: 20080930
  4. CRESTOR [Suspect]
     Indication: HYPERCHOLESTEROLAEMIA
     Dosage: 20 MG, 1X/DAY
     Route: 048
     Dates: start: 20080909, end: 20080930
  5. COAPROVEL [Concomitant]
     Dosage: UNK
     Route: 048
  6. BISOPROLOL [Concomitant]
     Dosage: 10 MG, 1X/DAY
     Route: 048

REACTIONS (1)
  - HEPATOTOXICITY [None]
